FAERS Safety Report 8786206 (Version 1)
Quarter: 2012Q4

REPORT INFORMATION
  Report Type: 
  Country: US (occurrence: US)
  Receive Date: 20120914
  Receipt Date: 20120914
  Transmission Date: 20130627
  Serious: No
  Sender: FDA-Public Use
  Company Number: US-B.I. PHARMACEUTICALS,INC./RIDGEFIELD-2012-BP-22247BP

PATIENT
  Age: 70 Year
  Sex: Male
  Weight: 100 kg

DRUGS (11)
  1. SPIRIVA [Suspect]
     Indication: DYSPNOEA
     Dosage: 18 mcg
     Route: 055
     Dates: start: 201201
  2. SPIRIVA [Suspect]
     Route: 048
     Dates: start: 20120907, end: 20120907
  3. METOPROLOL [Concomitant]
     Dosage: 25 mg
     Route: 048
     Dates: start: 2008
  4. ZOCOR [Concomitant]
     Dosage: 40 mg
     Route: 048
     Dates: start: 2007
  5. PRILOSEC [Concomitant]
     Indication: DYSPEPSIA
     Dosage: 20 mg
     Route: 048
     Dates: start: 2006
  6. ASPRIN [Concomitant]
     Indication: BLOOD DISORDER
     Dosage: 81 mg
     Route: 048
     Dates: start: 2007
  7. LASIX [Concomitant]
     Dosage: 40 mg
     Route: 048
     Dates: start: 201206
  8. ZOLOFT [Concomitant]
     Indication: RESTLESSNESS
     Dosage: 100 mg
     Route: 048
     Dates: start: 2002
  9. K-DUR [Concomitant]
     Dosage: 10 mg
     Route: 048
     Dates: start: 2009
  10. FISH OIL [Concomitant]
     Dosage: 2000 mg
     Route: 048
     Dates: start: 2009
  11. VIT D3 [Concomitant]
     Dosage: 2000 U
     Route: 048
     Dates: start: 2009

REACTIONS (1)
  - Incorrect route of drug administration [Recovered/Resolved]
